FAERS Safety Report 21248642 (Version 1)
Quarter: 2022Q3

REPORT INFORMATION
  Report Type: Spontaneous
  Country: US (occurrence: None)
  Receive Date: 20220823
  Receipt Date: 20220823
  Transmission Date: 20221026
  Serious: Yes (Disabling, Other)
  Sender: FDA-Public Use
  Company Number: None

PATIENT
  Age: 39 Year
  Sex: Female
  Weight: 62 kg

DRUGS (8)
  1. STRENSIQ [Suspect]
     Active Substance: ASFOTASE ALFA
     Indication: Hypophosphatasia
  2. ONDANSETRON [Concomitant]
     Active Substance: ONDANSETRON
  3. PRENATATAL VITAMIN [Concomitant]
     Dates: start: 20210418
  4. SUMATRIPTAN [Concomitant]
     Active Substance: SUMATRIPTAN
  5. DICLYCLOMINE 20MG [Concomitant]
     Dates: start: 20220117
  6. FAMOTIDINE [Concomitant]
     Active Substance: FAMOTIDINE
     Dates: start: 20220117
  7. IBUPROFEN [Concomitant]
     Active Substance: IBUPROFEN
  8. LEVOTHYROXINE SODIUM [Concomitant]
     Active Substance: LEVOTHYROXINE SODIUM

REACTIONS (8)
  - Blood alkaline phosphatase increased [None]
  - Gait disturbance [None]
  - Fatigue [None]
  - Arthralgia [None]
  - Throat irritation [None]
  - Headache [None]
  - Respiratory tract infection viral [None]
  - Anaemia [None]

NARRATIVE: CASE EVENT DATE: 20220727
